FAERS Safety Report 19165192 (Version 2)
Quarter: 2021Q2

REPORT INFORMATION
  Report Type: Spontaneous
  Country: HR (occurrence: HR)
  Receive Date: 20210421
  Receipt Date: 20210505
  Transmission Date: 20210717
  Serious: Yes (Life-Threatening, Hospitalization, Other)
  Sender: FDA-Public Use
  Company Number: HR-009507513-2104HRV001329

PATIENT
  Age: 52 Year
  Sex: Female

DRUGS (1)
  1. KEYTRUDA [Suspect]
     Active Substance: PEMBROLIZUMAB
     Indication: LUNG ADENOCARCINOMA
     Dosage: 200 MILLIGRAM, Q3W
     Dates: start: 20200123

REACTIONS (6)
  - Immune-mediated lung disease [Recovering/Resolving]
  - Diarrhoea [Recovering/Resolving]
  - Immune-mediated enterocolitis [Unknown]
  - Malignant neoplasm progression [Unknown]
  - General physical health deterioration [Recovering/Resolving]
  - Dehydration [Recovering/Resolving]

NARRATIVE: CASE EVENT DATE: 202004
